FAERS Safety Report 15596121 (Version 1)
Quarter: 2018Q4

REPORT INFORMATION
  Report Type: Spontaneous
  Country: US (occurrence: US)
  Receive Date: 20181107
  Receipt Date: 20181107
  Transmission Date: 20190205
  Serious: Yes (Other)
  Sender: FDA-Public Use
  Company Number: US-SA-2018SA303114

PATIENT
  Age: 64 Year
  Sex: Female
  Weight: 68 kg

DRUGS (18)
  1. TAXOTERE [Suspect]
     Active Substance: DOCETAXEL
     Indication: BREAST CANCER FEMALE
     Dosage: 75 MG/M2, Q3W
     Route: 042
     Dates: start: 20140919, end: 20140919
  2. ONDANSETRON [Concomitant]
     Active Substance: ONDANSETRON
     Dosage: 3 DF, QD, TAKE 3 TABLETS BY MOUTH ONE TIME.
     Route: 048
     Dates: start: 20140919, end: 20140919
  3. SODIUM CHLORIDE. [Concomitant]
     Active Substance: SODIUM CHLORIDE
     Dosage: 500 ML, GIVE 500 ML INTRAVENOUSLY CONTINUOUS
     Route: 042
     Dates: start: 20140919, end: 20140919
  4. SODIUM CHLORIDE. [Concomitant]
     Active Substance: SODIUM CHLORIDE
     Dosage: 500 UNK, GIVE 500 ML INTRAVENOUSLY CONTINUOUS
     Route: 042
     Dates: start: 20141010, end: 20141010
  5. ZOFRAN [ONDANSETRON] [Concomitant]
     Dosage: 8 MG, PRN
     Route: 048
  6. NEUPOGEN [Concomitant]
     Active Substance: FILGRASTIM
     Dosage: 300 MCG SQ DAILY X 7DAYS
     Route: 065
  7. ALTEPLASE. [Concomitant]
     Active Substance: ALTEPLASE
     Dosage: UNK UNK, UNK
     Route: 065
     Dates: start: 20140919, end: 20140919
  8. TAXOTERE [Suspect]
     Active Substance: DOCETAXEL
     Dosage: 75 MG/M2
     Route: 042
     Dates: start: 20150102, end: 20150102
  9. ADRIAMYCIN [Concomitant]
     Active Substance: DOXORUBICIN HYDROCHLORIDE
     Indication: CHEMOTHERAPY
     Dosage: UNK UNK, UNK
     Route: 065
  10. LIDOCAINE/PRILOCAINE [Concomitant]
     Active Substance: LIDOCAINE\PRILOCAINE
     Dosage: UNK
     Route: 061
     Dates: start: 20140919, end: 20151020
  11. BENADRYL [Concomitant]
     Active Substance: DIPHENHYDRAMINE HYDROCHLORIDE
     Dosage: 50 MG, QD
     Route: 042
     Dates: start: 20140919, end: 20170919
  12. ONDANSETRON [Concomitant]
     Active Substance: ONDANSETRON
     Dosage: 3 UNK, TAKE 3 TABLETS BY MOUTH ONE TIME.
     Route: 048
     Dates: start: 20141010, end: 20141010
  13. DOXORUBICIN [Concomitant]
     Active Substance: DOXORUBICIN
     Indication: CHEMOTHERAPY
     Dosage: 44 MG, QD, GIVE 22 ML INTRAVENOUSLY ONE TIME
     Route: 042
     Dates: start: 20140919, end: 20140919
  14. CYCLOPHOSPHAMIDE. [Concomitant]
     Active Substance: CYCLOPHOSPHAMIDE
     Indication: CHEMOTHERAPY
     Dosage: UNK UNK, UNK
     Route: 065
  15. COMPAZINE [PROCHLORPERAZINE MALEATE] [Concomitant]
     Dosage: 10 MG, PRN
     Route: 048
  16. DECADRON [DEXAMETHASONE] [Concomitant]
     Dosage: 2 TABLETS (TOTAL = 8MG) PO BID FOR 3 DAYS (A TOTAL OF 6 DOSES).
     Route: 048
  17. BENADRYL [Concomitant]
     Active Substance: DIPHENHYDRAMINE HYDROCHLORIDE
     Dosage: 50 UNK, GIVE 50 MG INTRAVENOUSLY ONE TIME.
     Route: 042
     Dates: start: 20141010, end: 20141010
  18. DOXORUBICIN [Concomitant]
     Active Substance: DOXORUBICIN
     Dosage: 44 UNK, GIVE 22 ML INTRAVENOUSLY ONE TIME.
     Route: 042
     Dates: start: 20141010, end: 20141010

REACTIONS (2)
  - Alopecia [Recovering/Resolving]
  - Psychological trauma [Unknown]

NARRATIVE: CASE EVENT DATE: 20150102
